FAERS Safety Report 9457436 (Version 1)
Quarter: 2013Q3

REPORT INFORMATION
  Report Type: Spontaneous
  Country: CH (occurrence: CH)
  Receive Date: 20130814
  Receipt Date: 20130814
  Transmission Date: 20140515
  Serious: Yes (Other)
  Sender: FDA-Public Use
  Company Number: CH-JNJFOC-20130704936

PATIENT
  Sex: Female

DRUGS (5)
  1. XARELTO [Suspect]
     Indication: PULMONARY EMBOLISM
     Route: 048
  2. XARELTO [Suspect]
     Indication: PULMONARY EMBOLISM
     Route: 048
  3. XARELTO [Suspect]
     Indication: PULMONARY EMBOLISM
     Route: 048
  4. MARCOUMAR [Concomitant]
     Route: 065
  5. CLEXANE [Concomitant]
     Route: 065

REACTIONS (2)
  - Procedural haemorrhage [Unknown]
  - Oedema peripheral [Unknown]
